FAERS Safety Report 25529692 (Version 2)
Quarter: 2025Q3

REPORT INFORMATION
  Report Type: Report from Study
  Country: CA (occurrence: CA)
  Receive Date: 20250708
  Receipt Date: 20250810
  Transmission Date: 20251021
  Serious: Yes (Other)
  Sender: ALEXION PHARMACEUTICALS
  Company Number: CA-AstraZeneca-CH-00799280A

PATIENT
  Age: 61 Year
  Sex: Female

DRUGS (7)
  1. BENRALIZUMAB [Suspect]
     Active Substance: BENRALIZUMAB
     Indication: Asthma
  2. BENRALIZUMAB [Suspect]
     Active Substance: BENRALIZUMAB
  3. SYMBICORT [Concomitant]
     Active Substance: BUDESONIDE\FORMOTEROL FUMARATE DIHYDRATE
     Route: 065
  4. ATROVENT [Concomitant]
     Active Substance: IPRATROPIUM BROMIDE
     Route: 065
  5. VENTOLIN [Concomitant]
     Active Substance: ALBUTEROL SULFATE
     Route: 065
  6. SPIRIVA RESPIMAT [Concomitant]
     Active Substance: TIOTROPIUM BROMIDE
     Route: 065
  7. MONTELUKAST [Concomitant]
     Active Substance: MONTELUKAST
     Dosage: 10 MILLIGRAM, QD
     Route: 065

REACTIONS (4)
  - Pulmonary thrombosis [Unknown]
  - Cough [Not Recovered/Not Resolved]
  - Respiratory syncytial virus infection [Unknown]
  - Asthma [Unknown]

NARRATIVE: CASE EVENT DATE: 20250101
